FAERS Safety Report 8502537-2 (Version None)
Quarter: 2012Q3

REPORT INFORMATION
  Report Type: 
  Country: None (occurrence: None)
  Receive Date: 20120711
  Receipt Date: 20120629
  Transmission Date: 20120928
  Serious: Yes (Hospitalization)
  Sender: FDA-Public Use
  Company Number: JP-ELI_LILLY_AND_COMPANY-JP201207000917

PATIENT
  Age: 76 Year
  Sex: Female

DRUGS (1)
  1. CYMBALTA [Suspect]
     Indication: HYPOAESTHESIA
     Dosage: 20 MG, QD
     Route: 048
     Dates: start: 20120623, end: 20120623

REACTIONS (2)
  - OFF LABEL USE [None]
  - DRUG HYPERSENSITIVITY [None]
